FAERS Safety Report 19597818 (Version 1)
Quarter: 2021Q3

REPORT INFORMATION
  Report Type: Other
  Country: US (occurrence: US)
  Receive Date: 20210722
  Receipt Date: 20210722
  Transmission Date: 20211014
  Serious: Yes (Other)
  Sender: FDA-Public Use
  Company Number: US-APOTEX-2021AP020683

PATIENT
  Age: 43 Year
  Sex: Female

DRUGS (2)
  1. ZANTAC [Suspect]
     Active Substance: RANITIDINE HYDROCHLORIDE
     Indication: DYSPEPSIA
     Dosage: OTHER (WEEKLY UNTIL 2006 WHEN GALLBLADDER WAS REMOVED. THEN SHE USED AS NEEDED.)
     Route: 065
     Dates: start: 199612, end: 201604
  2. RANITIDINE TABLETS [Suspect]
     Active Substance: RANITIDINE HYDROCHLORIDE
     Indication: DYSPEPSIA
     Dosage: OTHER (WEEKLY UNTIL GALLBLADDER REMOVED.  THEN USED AS NEEDED FOR HEARTBURN. )
     Route: 065
     Dates: start: 199706, end: 201604

REACTIONS (1)
  - Breast cancer [Not Recovered/Not Resolved]

NARRATIVE: CASE EVENT DATE: 20170801
